FAERS Safety Report 6356582-6 (Version None)
Quarter: 2009Q3

REPORT INFORMATION
  Report Type: 
  Country: None (occurrence: None)
  Receive Date: 20090915
  Receipt Date: 20090903
  Transmission Date: 20100115
  Serious: Yes (Hospitalization)
  Sender: FDA-Public Use
  Company Number: CH-WYE-H10877409

PATIENT
  Age: 77 Year
  Sex: Female

DRUGS (4)
  1. ZURCAL [Suspect]
     Indication: GASTROOESOPHAGEAL REFLUX DISEASE
     Route: 048
     Dates: start: 20090201
  2. MARCUMAR [Interacting]
     Indication: PULMONARY EMBOLISM
     Dosage: ^AS NECESSARY^
     Route: 048
     Dates: start: 20081105, end: 20090213
  3. FRAXIPARIN [Concomitant]
     Indication: PULMONARY EMBOLISM
     Dosage: UNKNOWN
     Route: 058
     Dates: start: 20090214
  4. PANTOZOL [Interacting]
     Indication: GASTROOESOPHAGEAL REFLUX DISEASE
     Route: 042
     Dates: start: 20090201, end: 20090201

REACTIONS (5)
  - DRUG INTERACTION [None]
  - GASTROINTESTINAL HAEMORRHAGE [None]
  - HAEMATOMA [None]
  - INTERNATIONAL NORMALISED RATIO INCREASED [None]
  - PARESIS [None]
